FAERS Safety Report 17966594 (Version 2)
Quarter: 2020Q3

REPORT INFORMATION
  Report Type: Report from Study
  Country: None (occurrence: ES)
  Receive Date: 20200701
  Receipt Date: 20200723
  Transmission Date: 20201103
  Serious: Yes (Hospitalization, Other)
  Sender: FDA-Public Use
  Company Number: ES-ABBVIE-20K-144-3458815-00

PATIENT
  Age: 82 Year
  Sex: Male
  Weight: 81 kg

DRUGS (3)
  1. DUODOPA [Suspect]
     Active Substance: CARBIDOPA\LEVODOPA
     Indication: PARKINSON^S DISEASE
     Route: 050
     Dates: start: 20170512, end: 20200622
  2. DUODOPA [Suspect]
     Active Substance: CARBIDOPA\LEVODOPA
     Route: 050
     Dates: start: 20200626, end: 2020
  3. CLONAZEPAM. [Concomitant]
     Active Substance: CLONAZEPAM
     Indication: PRODUCT USED FOR UNKNOWN INDICATION
     Route: 048

REACTIONS (10)
  - Medical device removal [Recovered/Resolved]
  - Pulmonary embolism [Recovering/Resolving]
  - Anxiety [Recovered/Resolved]
  - COVID-19 [Recovered/Resolved]
  - Vitamin D deficiency [Recovering/Resolving]
  - Device dislocation [Not Recovered/Not Resolved]
  - Pneumonia bacterial [Recovering/Resolving]
  - Malnutrition [Not Recovered/Not Resolved]
  - Weight decreased [Recovering/Resolving]
  - Agitation [Recovering/Resolving]

NARRATIVE: CASE EVENT DATE: 202006
